FAERS Safety Report 9085425 (Version 1)
Quarter: 2013Q1

REPORT INFORMATION
  Report Type: Report from Study
  Country: US (occurrence: US)
  Receive Date: 20130130
  Receipt Date: 20130130
  Transmission Date: 20140127
  Serious: No
  Sender: FDA-Public Use
  Company Number: US-ABBOTT-12P-163-0981901-00

PATIENT
  Age: 57 None
  Sex: Female
  Weight: 68.1 kg

DRUGS (13)
  1. HUMIRA [Suspect]
     Indication: RHEUMATOID ARTHRITIS
     Dates: start: 2007, end: 20120903
  2. SYNTHROID [Concomitant]
     Indication: HYPOTHYROIDISM
  3. NEXIUM [Concomitant]
     Indication: PROPHYLAXIS
  4. CYMBALTA [Concomitant]
     Indication: PAIN MANAGEMENT
  5. ANTARA [Concomitant]
     Indication: BLOOD CHOLESTEROL INCREASED
  6. ZETIA [Concomitant]
     Indication: BLOOD CHOLESTEROL INCREASED
  7. HYDROXYCHLOROQUINE [Concomitant]
     Indication: RHEUMATOID ARTHRITIS
  8. ENABLEX [Concomitant]
     Indication: PRODUCT USED FOR UNKNOWN INDICATION
  9. VITAMIN D [Concomitant]
     Indication: PRODUCT USED FOR UNKNOWN INDICATION
  10. OMEGA 3 KRILL OIL [Concomitant]
     Indication: BLOOD CHOLESTEROL INCREASED
  11. ASPIRIN [Concomitant]
     Indication: PROPHYLAXIS
  12. COLON HEALTH PROBIOTIC [Concomitant]
     Indication: PRODUCT USED FOR UNKNOWN INDICATION
  13. HYDROCODONE [Concomitant]
     Indication: PAIN

REACTIONS (3)
  - Nasopharyngitis [Not Recovered/Not Resolved]
  - Respiratory tract infection [Not Recovered/Not Resolved]
  - Bronchitis [Recovered/Resolved]
